FAERS Safety Report 6079056-9 (Version None)
Quarter: 2009Q1

REPORT INFORMATION
  Report Type: 
  Country: None (occurrence: None)
  Receive Date: 20090216
  Receipt Date: 20090202
  Transmission Date: 20090719
  Serious: Yes (Death, Disabling, Other)
  Sender: FDA-Public Use
  Company Number: CL-ROCHE-606613

PATIENT
  Age: 59 Year
  Sex: Male

DRUGS (2)
  1. XELODA [Suspect]
     Indication: COLORECTAL CANCER
     Dosage: FOR TWO WEEKS FOLLOWED BY 7 DAYS REST PERIOD.
     Route: 048
     Dates: start: 20081125, end: 20081229
  2. OXALIPLATIN [Concomitant]
     Route: 042
     Dates: start: 20081125, end: 20081229

REACTIONS (4)
  - DEHYDRATION [None]
  - DIARRHOEA [None]
  - HEPATOTOXICITY [None]
  - SKIN EXFOLIATION [None]
